FAERS Safety Report 8839213 (Version 1)
Quarter: 2012Q4

REPORT INFORMATION
  Report Type: 
  Country: US (occurrence: US)
  Receive Date: 20121015
  Receipt Date: 20121015
  Transmission Date: 20130627
  Serious: Yes (Hospitalization, Other)
  Sender: FDA-Public Use
  Company Number: US-SANOFI-AVENTIS-2012SA072048

PATIENT
  Age: 69 Year
  Sex: Male

DRUGS (3)
  1. LANTUS [Suspect]
     Indication: TYPE II DIABETES MELLITUS
     Dosage: Dose:50 unit(s)
     Route: 058
     Dates: end: 2012
  2. LANTUS [Suspect]
     Indication: TYPE II DIABETES MELLITUS
     Dosage: Dose:50 unit(s)
     Route: 058
  3. PREDNISONE [Concomitant]

REACTIONS (3)
  - Pituitary tumour recurrent [Not Recovered/Not Resolved]
  - Cardiac pacemaker insertion [Unknown]
  - Swelling [Unknown]
